FAERS Safety Report 12885501 (Version 2)
Quarter: 2016Q4

REPORT INFORMATION
  Report Type: Report from Study
  Country: IT (occurrence: IT)
  Receive Date: 20161026
  Receipt Date: 20161027
  Transmission Date: 20170207
  Serious: Yes (Death, Hospitalization)
  Sender: FDA-Public Use
  Company Number: IT-TEVA-705989ACC

PATIENT
  Age: 78 Year
  Sex: Female

DRUGS (3)
  1. CLEXANE - SANOFI S.P.A. [Interacting]
     Active Substance: ENOXAPARIN SODIUM
     Indication: VENA CAVA THROMBOSIS
     Dosage: 4000 IU (INTERNATIONAL UNIT) DAILY;
     Route: 058
  2. DELTACORTENE [Concomitant]
     Active Substance: PREDNISONE
     Indication: PRODUCT USED FOR UNKNOWN INDICATION
     Route: 048
  3. PAROXETINE. [Suspect]
     Active Substance: PAROXETINE
     Indication: PRODUCT USED FOR UNKNOWN INDICATION
     Dosage: 1 DOSAGE FORMS DAILY;
     Route: 048

REACTIONS (3)
  - Drug interaction [Fatal]
  - Subdural haematoma [Fatal]
  - Anaemia [Fatal]

NARRATIVE: CASE EVENT DATE: 20160910
